FAERS Safety Report 7025109-8 (Version None)
Quarter: 2010Q3

REPORT INFORMATION
  Report Type: 
  Country: None (occurrence: None)
  Receive Date: 20100929
  Receipt Date: 20100920
  Transmission Date: 20110219
  Serious: Yes (Hospitalization)
  Sender: FDA-Public Use
  Company Number: 2010US003861

PATIENT
  Age: 72 Year
  Sex: Male

DRUGS (4)
  1. AMBISOME [Suspect]
     Indication: FEBRILE NEUTROPENIA
     Dosage: IV NOS
     Route: 042
     Dates: start: 20100820, end: 20100820
  2. CEFEPIME [Concomitant]
  3. AMIKACINA (AMIKACIN SULFATE) [Concomitant]
  4. VANCOMICINA (VANCOMYCIN) [Concomitant]

REACTIONS (4)
  - BACK PAIN [None]
  - BLOOD LACTATE DEHYDROGENASE INCREASED [None]
  - CHOLURIA [None]
  - HAEMOLYTIC ANAEMIA [None]
